FAERS Safety Report 21217996 (Version 1)
Quarter: 2022Q3

REPORT INFORMATION
  Report Type: Spontaneous
  Country: FR (occurrence: FR)
  Receive Date: 20220816
  Receipt Date: 20220816
  Transmission Date: 20221027
  Serious: Yes (Hospitalization)
  Sender: FDA-Public Use
  Company Number: None

PATIENT
  Age: 75 Year
  Sex: Male
  Weight: 120 kg

DRUGS (10)
  1. RISPERDAL [Suspect]
     Active Substance: RISPERIDONE
     Indication: Product used for unknown indication
     Dosage: BEDTIME
     Route: 048
  2. TRULICITY [Suspect]
     Active Substance: DULAGLUTIDE
     Indication: Type 2 diabetes mellitus
     Dosage: 1,5MG/SEM
     Route: 058
     Dates: start: 20220502, end: 20220512
  3. INSULIN ASPART [Concomitant]
     Active Substance: INSULIN ASPART
     Indication: Ketosis-prone diabetes mellitus
     Dosage: MATIN
     Route: 058
  4. INSULIN ASPART [Concomitant]
     Active Substance: INSULIN ASPART
     Dosage: MATIN
     Route: 058
  5. CONEBILOX 5 MG/12.5 MG, FILM-COATED TABLET [Concomitant]
     Indication: Hypertension
     Route: 048
  6. ELIQUIS [Concomitant]
     Active Substance: APIXABAN
     Indication: Atrial fibrillation
     Route: 048
  7. ODRIK 2 MG, CAPSULE [Concomitant]
     Route: 048
  8. CRESTOR [Concomitant]
     Active Substance: ROSUVASTATIN CALCIUM
     Route: 048
  9. POTASSIUM CHLORIDE [Concomitant]
     Active Substance: POTASSIUM CHLORIDE
     Route: 048
  10. CORDARONE [Concomitant]
     Active Substance: AMIODARONE HYDROCHLORIDE
     Indication: Atrial fibrillation
     Dosage: 5 JOURS/7
     Route: 048

REACTIONS (1)
  - Small intestinal obstruction [Recovered/Resolved with Sequelae]

NARRATIVE: CASE EVENT DATE: 20220509
